FAERS Safety Report 7109904-2 (Version None)
Quarter: 2010Q4

REPORT INFORMATION
  Report Type: 
  Country: None (occurrence: None)
  Receive Date: 20101118
  Receipt Date: 20101109
  Transmission Date: 20110411
  Serious: Yes (Disabling)
  Sender: FDA-Public Use
  Company Number: JP-ASTRAZENECA-2009SE27754

PATIENT
  Age: 56 Year
  Sex: Female
  Weight: 41 kg

DRUGS (11)
  1. ARIMIDEX [Suspect]
     Indication: BREAST CANCER
     Route: 048
     Dates: start: 20081121
  2. ABILIFY [Suspect]
     Indication: SCHIZOPHRENIA
     Route: 048
     Dates: start: 20090817
  3. DORAL [Suspect]
     Indication: INSOMNIA
     Route: 048
     Dates: start: 20090928, end: 20091005
  4. HEAVY MAGNESIUM OXIDE [Concomitant]
     Indication: CONSTIPATION
     Dosage: NUMBER OF SEPARATE DOSES UNKNOWN, 1.5 G DAILY
     Route: 048
     Dates: start: 20090406
  5. SENNOSIDE [Concomitant]
     Indication: CONSTIPATION
     Dosage: NUMBER OF SEPARATE DOSES UNKNOWN, 36 MG DAILY
     Route: 048
     Dates: start: 20090707
  6. ROHYPNOL [Concomitant]
     Indication: INSOMNIA
     Dosage: NUMBER OF SEPARATE DOSES UNKNOWN, 2 MG DAILY
     Route: 048
     Dates: start: 20090707
  7. WINTERMIN [Concomitant]
     Indication: INSOMNIA
     Dosage: NUMBER OF SEPARATE DOSES UNKNOWN, 50 MG DAILY
     Route: 048
     Dates: start: 20090707
  8. PHENOBARBITAL [Concomitant]
     Indication: INSOMNIA
     Route: 048
     Dates: start: 20090707
  9. HIBERNA [Concomitant]
     Indication: INSOMNIA
     Dosage: NUMBER OF SEPARATE DOSES UNKNOWN, 25 MG DAILY
     Route: 048
     Dates: start: 20090707
  10. AKINETON [Concomitant]
     Indication: PARKINSONISM
     Dosage: NUMBER OF SEPARATE DOSES UNKNOWN, 1.5 MG DAILY
     Route: 048
     Dates: start: 20090707
  11. RISPERDAL [Concomitant]
     Indication: SCHIZOPHRENIA
     Dosage: NUMBER OF SEPARATE DOSES UNKNOWN, 25 MG DAILY
     Route: 048

REACTIONS (2)
  - ALTERED STATE OF CONSCIOUSNESS [None]
  - SEDATION [None]
